FAERS Safety Report 4340273-7 (Version None)
Quarter: 2004Q2

REPORT INFORMATION
  Report Type: 
  Country: None (occurrence: None)
  Receive Date: 20040412
  Receipt Date: 20040401
  Transmission Date: 20050107
  Serious: Yes (Hospitalization)
  Sender: FDA-Public Use
  Company Number: EMADSS2003002248

PATIENT
  Age: 29 Year
  Sex: Male

DRUGS (1)
  1. REMICADE [Suspect]
     Indication: RHEUMATOID ARTHRITIS
     Dosage: 1 IN 1 AS NECESSARY , INTRAVENOUS DRIP
     Route: 041

REACTIONS (12)
  - ARTHRALGIA [None]
  - ASTHENIA [None]
  - AUTOANTIBODY POSITIVE [None]
  - BLOOD CREATINE PHOSPHOKINASE INCREASED [None]
  - BLOOD LACTATE DEHYDROGENASE INCREASED [None]
  - DERMATOMYOSITIS [None]
  - ERYTHEMA [None]
  - FACE OEDEMA [None]
  - LYMPHADENOPATHY [None]
  - MYALGIA [None]
  - OEDEMA PERIPHERAL [None]
  - RED BLOOD CELL SEDIMENTATION RATE INCREASED [None]
